FAERS Safety Report 20419751 (Version 1)
Quarter: 2022Q1

REPORT INFORMATION
  Report Type: Spontaneous
  Country: US (occurrence: US)
  Receive Date: 20220203
  Receipt Date: 20220203
  Transmission Date: 20220423
  Serious: No
  Sender: FDA-Public Use
  Company Number: US-APOTEX-2021AP046816

PATIENT
  Sex: Male

DRUGS (1)
  1. BUTORPHANOL TARTRATE [Suspect]
     Active Substance: BUTORPHANOL TARTRATE
     Indication: Migraine
     Dosage: 1 DOSAGE FORM, QD (1 SPRAY IN ONE NOSTRIL DAILY)
     Route: 045

REACTIONS (3)
  - Impaired work ability [Unknown]
  - Product quality issue [Unknown]
  - Drug ineffective [Unknown]
